FAERS Safety Report 6503127-3 (Version None)
Quarter: 2009Q4

REPORT INFORMATION
  Report Type: 
  Country: None (occurrence: None)
  Receive Date: 20091217
  Receipt Date: 20091208
  Transmission Date: 20100525
  Serious: Yes (Other)
  Sender: FDA-Public Use
  Company Number: FR-ROCHE-674176

PATIENT
  Age: 27 Year
  Sex: Female

DRUGS (4)
  1. TAMIFLU [Suspect]
     Route: 048
     Dates: start: 20091120, end: 20091124
  2. TOPLEXIL [Concomitant]
     Dates: start: 20091120, end: 20091120
  3. POLARAMINE [Concomitant]
     Dates: start: 20091120, end: 20091120
  4. MAXILASE [Concomitant]
     Dates: start: 20091120, end: 20091120

REACTIONS (2)
  - DEPRESSION [None]
  - SUICIDAL IDEATION [None]
